FAERS Safety Report 10439559 (Version 1)
Quarter: 2014Q3

REPORT INFORMATION
  Report Type: Spontaneous
  Country: CA (occurrence: None)
  Receive Date: 20140905
  Receipt Date: 20140905
  Transmission Date: 20150326
  Serious: Yes (Hospitalization)
  Sender: FDA-Public Use
  Company Number: FK201403531

PATIENT
  Age: 5 Day
  Sex: Male

DRUGS (3)
  1. MORPHINE (MANUFACTURER UNKNOWN) (MORPHINE) (MORPHINE) [Suspect]
     Active Substance: MORPHINE
     Indication: SPINAL ANAESTHESIA
     Route: 064
  2. FENTANYL. [Concomitant]
     Active Substance: FENTANYL
  3. BUPIVACAINE MPF SPINAL (MACAINE SPINAL WITH DEXTROSE) [Concomitant]

REACTIONS (2)
  - Foetal exposure during delivery [None]
  - Herpes simplex [None]
